FAERS Safety Report 5104605-4 (Version None)
Quarter: 2006Q3

REPORT INFORMATION
  Report Type: 
  Country: None (occurrence: None)
  Receive Date: 20060914
  Receipt Date: 20060511
  Transmission Date: 20061208
  Serious: No
  Sender: FDA-Public Use
  Company Number: US-BRISTOL-MYERS SQUIBB COMPANY-13375001

PATIENT
  Age: 69 Year
  Sex: Female
  Weight: 75 kg

DRUGS (9)
  1. BUSPIRONE HCL [Suspect]
     Indication: DEPRESSION
     Route: 048
  2. BUSPIRONE HCL [Suspect]
     Indication: ANXIETY
     Route: 048
  3. VERAPAMIL [Suspect]
  4. ANAFRANIL [Suspect]
  5. GLIPIZIDE [Concomitant]
  6. METFORMIN HYDROCHLORIDE [Concomitant]
  7. PRAVACHOL [Concomitant]
  8. ZETIA [Concomitant]
  9. DIGOXIN [Concomitant]

REACTIONS (2)
  - COGNITIVE DISORDER [None]
  - DRUG INTERACTION [None]
